FAERS Safety Report 11427873 (Version 3)
Quarter: 2015Q4

REPORT INFORMATION
  Report Type: Spontaneous
  Country: US (occurrence: US)
  Receive Date: 20150828
  Receipt Date: 20151105
  Transmission Date: 20160304
  Serious: Yes (Hospitalization, Other)
  Sender: FDA-Public Use
  Company Number: US-PFIZER INC-2015275035

PATIENT
  Age: 73 Year
  Sex: Male
  Weight: 79.37 kg

DRUGS (9)
  1. SUTENT [Suspect]
     Active Substance: SUNITINIB MALATE
     Indication: RENAL CELL CARCINOMA STAGE IV
     Dosage: 12.5 MG, UNK
     Route: 048
     Dates: start: 20120501, end: 20150701
  2. SUTENT [Suspect]
     Active Substance: SUNITINIB MALATE
     Dosage: 12.5 MG, 3X/DAY THREE TIMES A WEEK ON MONDAY, WEDNESDAY, FRIDAY
     Route: 048
     Dates: start: 20150803, end: 20150911
  3. SUTENT [Suspect]
     Active Substance: SUNITINIB MALATE
     Dosage: UNK
  4. LIPITOR [Concomitant]
     Active Substance: ATORVASTATIN CALCIUM
     Dosage: UNK
  5. SUTENT [Suspect]
     Active Substance: SUNITINIB MALATE
     Dosage: UNK
  6. LOPRESSOR [Concomitant]
     Active Substance: METOPROLOL TARTRATE
     Dosage: UNK
  7. SUTENT [Suspect]
     Active Substance: SUNITINIB MALATE
     Dosage: 37.5 MG, UNK ((3) DAYS WEEKLY)
     Dates: start: 20120501, end: 201509
  8. SUTENT [Suspect]
     Active Substance: SUNITINIB MALATE
     Dosage: UNK
  9. PROTONIX [Concomitant]
     Active Substance: PANTOPRAZOLE SODIUM
     Dosage: UNK

REACTIONS (13)
  - Asthenia [Unknown]
  - Abdominal pain [Unknown]
  - Flatulence [Unknown]
  - Malaise [Not Recovered/Not Resolved]
  - Thrombosis [Unknown]
  - Disease progression [Unknown]
  - Pain [Unknown]
  - Renal cell carcinoma stage IV [Unknown]
  - Myocardial infarction [Unknown]
  - Diarrhoea [Not Recovered/Not Resolved]
  - Bacterial infection [Unknown]
  - Weight decreased [Unknown]
  - Chest pain [Unknown]

NARRATIVE: CASE EVENT DATE: 201507
